FAERS Safety Report 4492546-5 (Version None)
Quarter: 2004Q4

REPORT INFORMATION
  Report Type: 
  Country: None (occurrence: None)
  Receive Date: 20041029
  Receipt Date: 20041018
  Transmission Date: 20050328
  Serious: Yes (Hospitalization)
  Sender: FDA-Public Use
  Company Number: CH-2004-033817

PATIENT
  Age: 60 Year
  Sex: Male
  Weight: 53 kg

DRUGS (2)
  1. BETAFERON (INTERFERON BETA-1B) INJECTION, 250UG [Suspect]
     Indication: MULTIPLE SCLEROSIS
     Dosage: 8 MIU, EVERY 2D, SUBCUTANEOUS
     Route: 058
     Dates: start: 19950101
  2. NEURONTIN [Concomitant]

REACTIONS (5)
  - EXTREMITY NECROSIS [None]
  - GAMMA-GLUTAMYLTRANSFERASE INCREASED [None]
  - OEDEMA PERIPHERAL [None]
  - RAYNAUD'S PHENOMENON [None]
  - SYSTEMIC SCLEROSIS [None]
